FAERS Safety Report 6822104-6 (Version None)
Quarter: 2010Q3

REPORT INFORMATION
  Report Type: 
  Country: None (occurrence: None)
  Receive Date: 20100708
  Receipt Date: 20100629
  Transmission Date: 20110219
  Serious: Yes (Other)
  Sender: FDA-Public Use
  Company Number: GB-JNJFOC-20100700538

PATIENT
  Age: 31 Year
  Sex: Female

DRUGS (6)
  1. NORETHINDRONE [Suspect]
     Indication: CONTRACEPTION
     Route: 048
     Dates: start: 20100522, end: 20100608
  2. IBUPROFEN [Suspect]
     Indication: PRODUCT USED FOR UNKNOWN INDICATION
     Route: 065
  3. ACETAMINOPHEN [Suspect]
     Route: 065
  4. ACETAMINOPHEN [Suspect]
     Indication: PRODUCT USED FOR UNKNOWN INDICATION
     Route: 065
  5. KALETRA [Concomitant]
     Indication: PRODUCT USED FOR UNKNOWN INDICATION
     Route: 065
  6. KIVEXA [Concomitant]
     Indication: PRODUCT USED FOR UNKNOWN INDICATION
     Route: 065

REACTIONS (2)
  - HEPATIC ENZYME INCREASED [None]
  - HEPATITIS ACUTE [None]
